FAERS Safety Report 20536003 (Version 1)
Quarter: 2022Q1

REPORT INFORMATION
  Report Type: Spontaneous
  Country: US (occurrence: None)
  Receive Date: 20220302
  Receipt Date: 20220302
  Transmission Date: 20220423
  Serious: No
  Sender: FDA-Public Use
  Company Number: US-ROCHE-2959510

PATIENT
  Age: 14 Year

DRUGS (2)
  1. NUTROPIN [Suspect]
     Active Substance: SOMATROPIN
     Indication: Turner^s syndrome
     Dosage: 1 MG DAILY X 2 WEEKS THEN INCREASE TO 2 MG
     Route: 058
     Dates: start: 20211112
  2. NUTROPIN [Suspect]
     Active Substance: SOMATROPIN

REACTIONS (2)
  - Pain [Recovered/Resolved]
  - Injection site bruising [Recovered/Resolved]

NARRATIVE: CASE EVENT DATE: 20211112
